FAERS Safety Report 4326335-9 (Version None)
Quarter: 2004Q1

REPORT INFORMATION
  Report Type: 
  Country: None (occurrence: None)
  Receive Date: 20040329
  Receipt Date: 20040329
  Transmission Date: 20041129
  Serious: Yes (Other)
  Sender: FDA-Public Use
  Company Number: None

PATIENT
  Age: 74 Year
  Sex: Male
  Weight: 88.4 kg

DRUGS (4)
  1. MIACALCIN [Suspect]
     Indication: HYPERCALCAEMIA
     Dosage: 350 IU ONCE IV
     Route: 042
     Dates: start: 20040326, end: 20040326
  2. LASIX [Concomitant]
  3. MORPHINE [Concomitant]
  4. INSULIN [Concomitant]

REACTIONS (2)
  - MEDICATION ERROR [None]
  - SUPRAVENTRICULAR TACHYCARDIA [None]
